FAERS Safety Report 23285684 (Version 2)
Quarter: 2023Q4

REPORT INFORMATION
  Report Type: Spontaneous
  Country: DE (occurrence: DE)
  Receive Date: 20231212
  Receipt Date: 20231229
  Transmission Date: 20240110
  Serious: Yes (Other)
  Sender: FDA-Public Use
  Company Number: DE-BAYER-2023A175067

PATIENT
  Age: 77 Year
  Sex: Male
  Weight: 77 kg

DRUGS (57)
  1. XARELTO [Suspect]
     Active Substance: RIVAROXABAN
     Indication: Product used for unknown indication
     Route: 048
  2. TOCOPHEROL [Suspect]
     Active Substance: TOCOPHEROL
     Dosage: 20000 IU
  3. ERGOCALCIFEROL [Suspect]
     Active Substance: ERGOCALCIFEROL
     Dosage: 2000 IU
  4. CALCIUM CARBONATE [Suspect]
     Active Substance: CALCIUM CARBONATE
     Dosage: UNK UNK, UNKNOWN FREQ. (UNK (1 IN 1.5 DAY UNK, CALCIUM HEXAL (CALCIUM CARBONATE))
     Route: 065
  5. CALCIUM CARBONATE [Suspect]
     Active Substance: CALCIUM CARBONATE
     Dosage: UNK ,500 MG BID(1
     Route: 065
  6. ATROVENT [Suspect]
     Active Substance: IPRATROPIUM BROMIDE
  7. BISOPROLOL [Suspect]
     Active Substance: BISOPROLOL\BISOPROLOL FUMARATE
     Dosage: UNK, DAILY, QD (1-0-0
  8. ROSUVASTATIN CALCIUM [Suspect]
     Active Substance: ROSUVASTATIN CALCIUM
  9. FLUTICASONE PROPIONATE [Suspect]
     Active Substance: FLUTICASONE PROPIONATE
  10. SALMETEROL [Suspect]
     Active Substance: SALMETEROL
  11. PRALUENT [Suspect]
     Active Substance: ALIROCUMAB
     Dosage: UNK UNK, UNKNOWN 75 UNK
  12. CLOPIDOGREL BISULFATE [Suspect]
     Active Substance: CLOPIDOGREL BISULFATE
  13. HERBALS [Suspect]
     Active Substance: HERBALS
  14. BIOTIN [Suspect]
     Active Substance: BIOTIN
     Dosage: 1 DF, QD
  15. ALBUTEROL [Suspect]
     Active Substance: ALBUTEROL
  16. MOMETASONE [Suspect]
     Active Substance: MOMETASONE
  17. MOMETASONE FUROATE [Suspect]
     Active Substance: MOMETASONE FUROATE
  18. CLOPIDOGREL [Suspect]
     Active Substance: CLOPIDOGREL BISULFATE
     Dosage: UNK UNK, DAILY BID (1-0-1)
  19. CRESTOR [Suspect]
     Active Substance: ROSUVASTATIN CALCIUM
  20. MOMETASONE FUROATE [Suspect]
     Active Substance: MOMETASONE FUROATE
     Dosage: 2 DOSAGE FORM, BID (2 PUFF(S), BID 1-0-1)
  21. COLESEVELAM HYDROCHLORIDE [Suspect]
     Active Substance: COLESEVELAM HYDROCHLORIDE
  22. FLUTICASONE PROPIONATE\SALMETEROL XINAFOATE [Suspect]
     Active Substance: FLUTICASONE PROPIONATE\SALMETEROL XINAFOATE
  23. ALBUTEROL SULFATE [Suspect]
     Active Substance: ALBUTEROL SULFATE
  24. TAMSULOSIN [Suspect]
     Active Substance: TAMSULOSIN
  25. MAGNESIUM OROTATE [Suspect]
     Active Substance: MAGNESIUM OROTATE
     Dosage: UNK UNK, DAILY (TID (3-2-3))
  26. MAGNESIUM OROTATE [Suspect]
     Active Substance: MAGNESIUM OROTATE
     Dosage: UNK UNK, DAILY (TID (3-2-3))
  27. CALCIUM PANTOTHENATE [Suspect]
     Active Substance: CALCIUM PANTOTHENATE
     Dosage: UNK UNK, EVERY 8 HRS
  28. TADALAFIL [Suspect]
     Active Substance: TADALAFIL
  29. DICLOFENAC DIETHYLAMINE [Suspect]
     Active Substance: DICLOFENAC DIETHYLAMINE
  30. COLESEVELAM [Suspect]
     Active Substance: COLESEVELAM
  31. MAGNESIUM ASPARTATE\POTASSIUM ASPARTATE [Suspect]
     Active Substance: MAGNESIUM ASPARTATE\POTASSIUM ASPARTATE
  32. MAGNESIUM ASPARTATE\POTASSIUM ASPARTATE [Suspect]
     Active Substance: MAGNESIUM ASPARTATE\POTASSIUM ASPARTATE
  33. ACETIC ACID\DELTAMETHRIN [Suspect]
     Active Substance: ACETIC ACID\DELTAMETHRIN
     Dosage: 500 IU, Q12HUNK UNK, UNKNOW
  34. .ALPHA.-TOCOPHEROL ACETATE, DL- [Suspect]
     Active Substance: .ALPHA.-TOCOPHEROL ACETATE, DL-
     Dosage: 1 DF, QW
  35. ASPIRIN CALCIUM [Suspect]
     Active Substance: ASPIRIN CALCIUM
  36. CIALIS [Suspect]
     Active Substance: TADALAFIL
     Dosage: UNK
  37. GINKGO [Suspect]
     Active Substance: GINKGO
     Dosage: UNK, STRENGTH: 500) BID (1-0-1)BID
  38. AMBROXOL HYDROCHLORIDE [Suspect]
     Active Substance: AMBROXOL HYDROCHLORIDE
  39. IBUPROFEN [Suspect]
     Active Substance: IBUPROFEN
     Dosage: UNK UNK, UNKNOWN FREQ. (UNK (1 IN 1.5 DAY UNK, CALCIUM HEXAL (CALCIUM CARBONATE))
     Route: 065
  40. IBUPROFEN [Suspect]
     Active Substance: IBUPROFEN
     Dosage: UNK ,500 MG BID(1
     Route: 065
  41. CALCIUM [Suspect]
     Active Substance: CALCIUM
     Dosage: UNK UNK, UNKNOWN FREQ. (UNK (1 IN 1.5 DAY UNK, CALCIUM HEXAL (CALCIUM CARBONATE))
     Route: 065
  42. CALCIUM [Suspect]
     Active Substance: CALCIUM
     Dosage: UNK ,500 MG BID(1
     Route: 065
  43. DIETARY SUPPLEMENT [Suspect]
     Active Substance: DIETARY SUPPLEMENT
     Dosage: UNK UNK, UNKNOWN 75 UNK
  44. ASPIRIN [Suspect]
     Active Substance: ASPIRIN
  45. GINKGO [Suspect]
     Active Substance: GINKGO
  46. GELATIN\POTASSIUM CHLORIDE\SODIUM CHLORIDE [Suspect]
     Active Substance: GELATIN\POTASSIUM CHLORIDE\SODIUM CHLORIDE
     Dosage: 1 DF, QD
  47. HERBALS [Suspect]
     Active Substance: HERBALS
     Dosage: UNK UNK, DAILY (TID (3-2-3))
  48. HERBALS [Suspect]
     Active Substance: HERBALS
     Dosage: UNK UNK, DAILY (TID (3-2-3))
  49. DICLOFENAC [Suspect]
     Active Substance: DICLOFENAC
  50. IBUPROFEN [Suspect]
     Active Substance: IBUPROFEN
     Dosage: 500 IU, Q12HUNK UNK, UNKNOW
  51. EVOLOCUMAB [Concomitant]
     Active Substance: EVOLOCUMAB
     Dosage: 1 IN 1 WEEK
  52. OLMESARTAN MEDOXOMIL [Concomitant]
     Active Substance: OLMESARTAN MEDOXOMIL
  53. EVOLOCUMAB [Concomitant]
     Active Substance: EVOLOCUMAB
     Dosage: UNK, Q3W
  54. OLMESARTAN MEDOXOMIL [Concomitant]
     Active Substance: OLMESARTAN MEDOXOMIL
  55. AMBROXOL HYDROCHLORIDE [Concomitant]
     Active Substance: AMBROXOL HYDROCHLORIDE
  56. PREDNISOLONE [Concomitant]
     Active Substance: PREDNISOLONE
  57. CALCIUM CARBONATE [Concomitant]
     Active Substance: CALCIUM CARBONATE

REACTIONS (28)
  - Eosinophilia [Unknown]
  - Plantar fasciitis [Unknown]
  - Coronary artery disease [Unknown]
  - Myoglobin blood increased [Unknown]
  - Dyspnoea [Unknown]
  - Chest discomfort [Unknown]
  - Cough [Not Recovered/Not Resolved]
  - Cardiac disorder [Unknown]
  - Dyspnoea exertional [Unknown]
  - Atrial fibrillation [Recovered/Resolved]
  - Exostosis [Unknown]
  - Exostosis [Unknown]
  - Sensation of foreign body [Unknown]
  - Increased upper airway secretion [Unknown]
  - Dysphonia [Not Recovered/Not Resolved]
  - Pneumothorax [Not Recovered/Not Resolved]
  - Chest discomfort [Not Recovered/Not Resolved]
  - Brain natriuretic peptide increased [Unknown]
  - Fractional exhaled nitric oxide increased [Recovered/Resolved]
  - Wheezing [Unknown]
  - Obstructive sleep apnoea syndrome [Unknown]
  - Muscle spasms [Unknown]
  - Obstructive airways disorder [Unknown]
  - Nasopharyngitis [Unknown]
  - Nasopharyngitis [Unknown]
  - Muscle spasms [Unknown]
  - Obstructive airways disorder [Unknown]
  - Foreign body in throat [Unknown]

NARRATIVE: CASE EVENT DATE: 20180101
